FAERS Safety Report 25732865 (Version 1)
Quarter: 2025Q3

REPORT INFORMATION
  Report Type: Spontaneous
  Country: CN (occurrence: CN)
  Receive Date: 20250828
  Receipt Date: 20250828
  Transmission Date: 20251021
  Serious: Yes (Other)
  Sender: BAXTER
  Company Number: None

PATIENT
  Age: 18 Year
  Sex: Male
  Weight: 100 kg

DRUGS (21)
  1. IFOSFAMIDE [Suspect]
     Active Substance: IFOSFAMIDE
     Indication: Burkitt^s lymphoma stage IV
     Dosage: 3 G, QD, IVGTT D1
     Route: 041
     Dates: start: 20250523, end: 20250523
  2. IFOSFAMIDE [Suspect]
     Active Substance: IFOSFAMIDE
     Indication: Metastases to bone marrow
     Dosage: 4 G, QD, IVGTT D2-3
     Route: 041
     Dates: start: 20250524, end: 20250525
  3. ETOPOSIDE [Suspect]
     Active Substance: ETOPOSIDE
     Indication: Burkitt^s lymphoma stage IV
     Dosage: 5 ML, BID, 2 GROUPS IVGTT QD D2-4
     Route: 041
     Dates: start: 20250523, end: 20250525
  4. ETOPOSIDE [Suspect]
     Active Substance: ETOPOSIDE
     Indication: Metastases to bone marrow
     Dosage: 1 ML, QD, 2 GROUPS IVGTT QD D2-4,
     Route: 041
     Dates: start: 20250523, end: 20250525
  5. CARBOPLATIN [Suspect]
     Active Substance: CARBOPLATIN
     Indication: Burkitt^s lymphoma stage IV
     Dosage: 0.8 G, QD, IVGTT D3
     Route: 041
     Dates: start: 20250524, end: 20250524
  6. CARBOPLATIN [Suspect]
     Active Substance: CARBOPLATIN
     Indication: Metastases to bone marrow
  7. CYTARABINE [Suspect]
     Active Substance: CYTARABINE
     Indication: Burkitt^s lymphoma stage IV
     Dosage: 0.5 G, QD (1 ML WAS ADMINISTERED VIA INTRATHECAL)
     Route: 037
     Dates: start: 20250523, end: 20250523
  8. CYTARABINE [Suspect]
     Active Substance: CYTARABINE
     Indication: Metastases to bone marrow
  9. RIPERTAMAB [Suspect]
     Active Substance: RIPERTAMAB
     Indication: Burkitt^s lymphoma stage IV
     Dosage: 100 MG, TID,RIPERTAMAB 100 MG X 3 GROUPS IVGTT D1
     Route: 041
     Dates: start: 20250522, end: 20250522
  10. RIPERTAMAB [Suspect]
     Active Substance: RIPERTAMAB
     Indication: Metastases to bone marrow
     Dosage: 500 MG, QD,IVGTT D1
     Route: 041
     Dates: start: 20250522, end: 20250522
  11. METHOTREXATE [Suspect]
     Active Substance: METHOTREXATE
     Indication: Burkitt^s lymphoma stage IV
     Dosage: 0.5 G, QD, (2 ML WAS ADMINISTERED VIA INTRATHECAL INJECTION D2)
     Route: 037
     Dates: start: 20250523, end: 20250523
  12. METHOTREXATE [Suspect]
     Active Substance: METHOTREXATE
     Indication: Metastases to bone marrow
  13. DEXTROSE [Suspect]
     Active Substance: DEXTROSE MONOHYDRATE
     Indication: Medication dilution
     Dosage: 500 ML, QD WITH CARBOPLATIN 0.8 GM
     Route: 041
     Dates: start: 20250524, end: 20250524
  14. SODIUM CHLORIDE [Suspect]
     Active Substance: SODIUM CHLORIDE
     Indication: Medication dilution
     Dosage: 450 ML, QD WITH RIPERTAMAB 500 MG
     Route: 041
     Dates: start: 20250522, end: 20250522
  15. SODIUM CHLORIDE [Suspect]
     Active Substance: SODIUM CHLORIDE
     Dosage: 90 ML, TID WITH RIPERTAMAB 100 MG
     Route: 041
     Dates: start: 20250522, end: 20250522
  16. SODIUM CHLORIDE [Suspect]
     Active Substance: SODIUM CHLORIDE
     Dosage: 100 ML, QD WITH ETOPOSIDE 1 ML
     Route: 041
     Dates: start: 20250523, end: 20250525
  17. SODIUM CHLORIDE [Suspect]
     Active Substance: SODIUM CHLORIDE
     Dosage: 500 ML,BID WITH ETOPOSIDE 5 ML
     Route: 041
     Dates: start: 20250523, end: 20250525
  18. SODIUM CHLORIDE [Suspect]
     Active Substance: SODIUM CHLORIDE
     Dosage: 500 ML, QD WITH 3 GM IFOSFAMIDE
     Route: 041
     Dates: start: 20250523, end: 20250523
  19. SODIUM CHLORIDE [Suspect]
     Active Substance: SODIUM CHLORIDE
     Dosage: 100 ML, QD WITH METOTHREXATE
     Route: 037
     Dates: start: 20250523, end: 20250523
  20. SODIUM CHLORIDE [Suspect]
     Active Substance: SODIUM CHLORIDE
     Dosage: 10 ML, QD WITH CYTARABINE
     Route: 037
     Dates: start: 20250523, end: 20250523
  21. SODIUM CHLORIDE [Suspect]
     Active Substance: SODIUM CHLORIDE
     Dosage: 500 ML, QD, WITH 4G IFOSFAMIDE
     Route: 041
     Dates: start: 20250524, end: 20250525

REACTIONS (1)
  - Bicytopenia [Recovering/Resolving]

NARRATIVE: CASE EVENT DATE: 20250603
